FAERS Safety Report 11130484 (Version 6)
Quarter: 2015Q3

REPORT INFORMATION
  Report Type: Spontaneous
  Country: US (occurrence: US)
  Receive Date: 20150522
  Receipt Date: 20150903
  Transmission Date: 20151125
  Serious: No
  Sender: FDA-Public Use
  Company Number: US-AMGEN-USASP2015049670

PATIENT
  Age: 58 Year
  Sex: Female

DRUGS (2)
  1. ENBREL [Suspect]
     Active Substance: ETANERCEPT
     Indication: RHEUMATOID ARTHRITIS
     Dosage: UNK UNK, QWK
     Route: 065
     Dates: start: 201305, end: 20130530
  2. METHOTREXATE [Concomitant]
     Active Substance: METHOTREXATE
     Dosage: 7 MG, QWK
     Dates: start: 201203

REACTIONS (14)
  - Rash [Recovered/Resolved]
  - Adverse drug reaction [Unknown]
  - Erythema [Recovered/Resolved]
  - Mobility decreased [Unknown]
  - Skin warm [Recovered/Resolved]
  - Swelling [Recovered/Resolved]
  - Impaired work ability [Unknown]
  - Photosensitivity reaction [Recovered/Resolved]
  - Skin burning sensation [Recovered/Resolved]
  - Temperature intolerance [Unknown]
  - Injection site pain [Recovered/Resolved]
  - Nasopharyngitis [Unknown]
  - Drug ineffective [Recovered/Resolved]
  - Skin discolouration [Recovered/Resolved]

NARRATIVE: CASE EVENT DATE: 201305
